FAERS Safety Report 6524684-7 (Version None)
Quarter: 2009Q4

REPORT INFORMATION
  Report Type: 
  Country: None (occurrence: None)
  Receive Date: 20091231
  Receipt Date: 20091231
  Transmission Date: 20100525
  Serious: Yes (Hospitalization)
  Sender: FDA-Public Use
  Company Number: None

PATIENT
  Age: 11 Month
  Sex: Female
  Weight: 6.85 kg

DRUGS (2)
  1. SYNAGIS [Suspect]
     Indication: RESPIRATORY SYNCYTIAL VIRUS INFECTION
     Dosage: 15MG/KG ONCE A MONTH IM
     Route: 030
     Dates: start: 20091110
  2. SYNAGIS [Suspect]
     Indication: RESPIRATORY SYNCYTIAL VIRUS INFECTION
     Dosage: 15MG/KG ONCE A MONTH IM
     Route: 030
     Dates: start: 20091216

REACTIONS (1)
  - NASOPHARYNGITIS [None]
